FAERS Safety Report 21224096 (Version 1)
Quarter: 2022Q3

REPORT INFORMATION
  Report Type: Spontaneous
  Country: US (occurrence: US)
  Receive Date: 20220817
  Receipt Date: 20220817
  Transmission Date: 20221027
  Serious: No
  Sender: FDA-Public Use
  Company Number: US-SA-2022MK000069

PATIENT
  Age: 65 Year
  Sex: Male
  Weight: 105.33 kg

DRUGS (18)
  1. AFREZZA [Suspect]
     Active Substance: INSULIN HUMAN
     Indication: Type 2 diabetes mellitus
     Dosage: 12-24 UNITS INHALED WITH MEALS, 4-8 UNITS 2 HOURS AFTER MEALS DEPENDING ON BLOOD GLUCOSE LEVEL
     Dates: start: 202203
  2. AFREZZA [Suspect]
     Active Substance: INSULIN HUMAN
     Dosage: 12-24 UNITS INHALED WITH MEALS, 4-8 UNITS 2 HOURS AFTER MEALS DEPENDING ON BLOOD GLUCOSE LEVEL
     Dates: start: 202203
  3. METFORMIN [Concomitant]
     Active Substance: METFORMIN HYDROCHLORIDE
     Indication: Type 2 diabetes mellitus
     Route: 048
     Dates: start: 2007
  4. JARDIANCE [Concomitant]
     Active Substance: EMPAGLIFLOZIN
     Indication: Type 2 diabetes mellitus
     Route: 048
     Dates: start: 2021
  5. OZEMPIC [Concomitant]
     Active Substance: SEMAGLUTIDE
     Indication: Type 2 diabetes mellitus
     Route: 058
     Dates: start: 202203
  6. TRESIBA [Concomitant]
     Active Substance: INSULIN DEGLUDEC
     Indication: Type 2 diabetes mellitus
     Route: 058
     Dates: start: 202203
  7. HYDROCHLOROTHIAZIDE\LOSARTAN [Concomitant]
     Active Substance: HYDROCHLOROTHIAZIDE\LOSARTAN
     Indication: Hypertension
     Dosage: 25MG/12.5MG
     Route: 048
  8. METOPROLOL [Concomitant]
     Active Substance: METOPROLOL
     Indication: Hypertension
     Route: 048
  9. PROTONIX [Concomitant]
     Active Substance: PANTOPRAZOLE SODIUM
     Indication: Gastrooesophageal reflux disease
     Route: 048
  10. PERCOCET [Concomitant]
     Active Substance: ACETAMINOPHEN\OXYCODONE HYDROCHLORIDE
     Indication: Product used for unknown indication
     Dosage: 7.5MG FOUR TIMES A DAY AS NEEDED
     Route: 048
  11. NITROGLYCERIN [Concomitant]
     Active Substance: NITROGLYCERIN
     Indication: Cardiovascular event prophylaxis
     Route: 060
  12. SIMVASTATIN [Concomitant]
     Active Substance: SIMVASTATIN
     Indication: Cardiovascular event prophylaxis
     Route: 048
  13. TRICOR [Concomitant]
     Active Substance: FENOFIBRATE
     Indication: Cardiovascular event prophylaxis
     Route: 048
  14. SERTRALINE [Concomitant]
     Active Substance: SERTRALINE HYDROCHLORIDE
     Indication: Product used for unknown indication
     Route: 048
  15. ASPIRIN [Concomitant]
     Active Substance: ASPIRIN
     Indication: Cardiovascular event prophylaxis
     Route: 048
  16. CELEBREX [Concomitant]
     Active Substance: CELECOXIB
     Indication: Product used for unknown indication
     Route: 048
  17. ICOSAPENT [Concomitant]
     Active Substance: ICOSAPENT
     Indication: Cardiovascular event prophylaxis
     Route: 048
  18. IMDUR [Concomitant]
     Active Substance: ISOSORBIDE MONONITRATE
     Indication: Cardiovascular event prophylaxis
     Route: 048

REACTIONS (1)
  - Cough [Recovered/Resolved]

NARRATIVE: CASE EVENT DATE: 20220301
